FAERS Safety Report 8974108 (Version 1)
Quarter: 2012Q4

REPORT INFORMATION
  Report Type: Spontaneous
  Country: JP (occurrence: None)
  Receive Date: 20121212
  Receipt Date: 20121212
  Transmission Date: 20130627
  Serious: Yes (Hospitalization)
  Sender: FDA-Public Use
  Company Number: 142746

PATIENT
  Age: 62 Year
  Sex: Female

DRUGS (1)
  1. ADRIAMYCIN (DOXORUBICIN) INJ. USP 10MG/5ML - BEDFORD LABS, INC. [Suspect]

REACTIONS (8)
  - Posterior reversible encephalopathy syndrome [None]
  - Febrile neutropenia [None]
  - Stevens-Johnson syndrome [None]
  - Hyponatraemia [None]
  - Fall [None]
  - Sepsis [None]
  - Blood pressure increased [None]
  - Cerebral haemorrhage [None]
